FAERS Safety Report 19085622 (Version 1)
Quarter: 2021Q2

REPORT INFORMATION
  Report Type: Spontaneous
  Country: US (occurrence: US)
  Receive Date: 20210402
  Receipt Date: 20210402
  Transmission Date: 20210717
  Serious: Yes (Life-Threatening, Hospitalization, Other)
  Sender: FDA-Public Use
  Company Number: US-HIKMA PHARMACEUTICALS USA INC.-US-H14001-21-54006

PATIENT
  Age: 59 Year
  Sex: Female

DRUGS (2)
  1. OCTREOTIDE. [Suspect]
     Active Substance: OCTREOTIDE
  2. OCTREOTIDE. [Suspect]
     Active Substance: OCTREOTIDE
     Indication: CARCINOID CRISIS
     Dosage: DOSE INCREASED
     Route: 065

REACTIONS (11)
  - Electrocardiogram ST segment elevation [Recovered/Resolved]
  - Arteriospasm coronary [Recovered/Resolved]
  - Tachycardia [Recovered/Resolved]
  - Cardiomyopathy [Recovered/Resolved]
  - Delirium [Unknown]
  - Acute pulmonary oedema [Unknown]
  - Cardiac failure [Recovered/Resolved]
  - Left ventricular dysfunction [Recovered/Resolved]
  - Hyperhidrosis [Unknown]
  - Left ventricular end-diastolic pressure increased [Recovered/Resolved]
  - Cardiogenic shock [Recovered/Resolved]
